FAERS Safety Report 9228286 (Version 1)
Quarter: 2013Q1

REPORT INFORMATION
  Report Type: Spontaneous
  Country: US (occurrence: None)
  Receive Date: 20121024
  Receipt Date: 20121024
  Transmission Date: 20140127
  Serious: Yes (Hospitalization)
  Sender: FDA-Public Use
  Company Number: DSA_57554_2012

PATIENT
  Sex: Male

DRUGS (4)
  1. BUPROPION [Suspect]
     Route: 048
     Dates: start: 201204, end: 201204
  2. OLANZAPINE [Concomitant]
  3. LISINOPRIL [Concomitant]
  4. PRO-AIR [Concomitant]

REACTIONS (2)
  - Pneumonia [None]
  - Influenza [None]
